FAERS Safety Report 18482545 (Version 1)
Quarter: 2020Q4

REPORT INFORMATION
  Report Type: Spontaneous
  Country: US (occurrence: US)
  Receive Date: 20201109
  Receipt Date: 20201109
  Transmission Date: 20210114
  Serious: No
  Sender: FDA-Public Use
  Company Number: US-ALLERGAN-2001869US

PATIENT
  Age: 58 Year
  Sex: Female

DRUGS (1)
  1. NORETHINDRONE;ETHINYLESTRADIOL;FERROUS FUMARATE UNK [Suspect]
     Active Substance: ETHINYL ESTRADIOL\NORETHINDRONE
     Indication: OESTROGEN REPLACEMENT THERAPY
     Dosage: 1 DF, QD
     Route: 048

REACTIONS (4)
  - Drug ineffective [Unknown]
  - Haemorrhage [Recovered/Resolved]
  - Abdominal pain [Recovered/Resolved]
  - Off label use [Unknown]

NARRATIVE: CASE EVENT DATE: 202001
